FAERS Safety Report 17992630 (Version 1)
Quarter: 2020Q3

REPORT INFORMATION
  Report Type: Spontaneous
  Country: US (occurrence: US)
  Receive Date: 20200707
  Receipt Date: 20200707
  Transmission Date: 20201103
  Serious: Yes (Hospitalization, Other)
  Sender: FDA-Public Use
  Company Number: NVSC2020US187151

PATIENT
  Age: 67 Year
  Sex: Female

DRUGS (2)
  1. DOCETAXEL. [Suspect]
     Active Substance: DOCETAXEL
     Indication: ENDOMETRIAL ADENOCARCINOMA
     Dosage: 75 MG/M2
     Route: 065
     Dates: end: 201708
  2. CARBOPLATIN. [Suspect]
     Active Substance: CARBOPLATIN
     Indication: ENDOMETRIAL ADENOCARCINOMA
     Dosage: UNK, AUC 6
     Route: 065

REACTIONS (6)
  - Nausea [Unknown]
  - Endometrial adenocarcinoma [Unknown]
  - Product use in unapproved indication [Unknown]
  - Pain [Unknown]
  - Malignant neoplasm progression [Unknown]
  - Neutropenia [Unknown]
